FAERS Safety Report 7248914-1 (Version None)
Quarter: 2011Q1

REPORT INFORMATION
  Report Type: 
  Country: None (occurrence: None)
  Receive Date: 20110128
  Receipt Date: 20100622
  Transmission Date: 20110831
  Serious: Yes (Hospitalization)
  Sender: FDA-Public Use
  Company Number: US-BAYER-200930995NA

PATIENT
  Sex: Female
  Weight: 70 kg

DRUGS (10)
  1. ADVIL [Concomitant]
     Dates: start: 20000101
  2. SOLU-MEDROL [Concomitant]
     Dosage: 60 MG (DAILY DOSE), , INTRAVENOUS
     Route: 042
  3. COUMADIN [Concomitant]
  4. LAXATIVES [Concomitant]
     Dates: start: 20030101, end: 20070101
  5. YAZ [Suspect]
     Indication: CONTRACEPTION
     Dosage: 1 DF (DAILY DOSE), QD, ORAL
     Route: 048
     Dates: start: 20070308, end: 20070817
  6. NORMAL SALINE [Concomitant]
     Dosage: 70 CC PER HOUR
  7. TRAZODONE [Concomitant]
     Dosage: 25 - 50 MG G.HS
  8. BENADRYL [Concomitant]
     Dosage: 25 MG (DAILY DOSE), , INTRAVENOUS
     Route: 042
  9. HEPARIN [Concomitant]
  10. COUMADIN [Concomitant]

REACTIONS (3)
  - HEMIPARESIS [None]
  - CEREBROVASCULAR ACCIDENT [None]
  - APHASIA [None]
